FAERS Safety Report 16630545 (Version 1)
Quarter: 2019Q3

REPORT INFORMATION
  Report Type: Spontaneous
  Country: US (occurrence: US)
  Receive Date: 20190725
  Receipt Date: 20190725
  Transmission Date: 20191004
  Serious: Yes (Death, Other)
  Sender: FDA-Public Use
  Company Number: US-BAYER-2019-136395

PATIENT
  Age: 65 Year
  Sex: Male

DRUGS (2)
  1. SORAFENIB (RAF KINASE INHIBITOR) [Suspect]
     Active Substance: SORAFENIB
     Indication: HEPATOCELLULAR CARCINOMA
     Dosage: 400 MG, BID
     Route: 048
     Dates: start: 20111202
  2. SORAFENIB (RAF KINASE INHIBITOR) [Suspect]
     Active Substance: SORAFENIB
     Indication: TUMOUR THROMBOSIS

REACTIONS (5)
  - Pulmonary artery thrombosis [None]
  - Pulmonary infarction [None]
  - Death [Fatal]
  - Hepatocellular carcinoma [None]
  - Pain in extremity [None]

NARRATIVE: CASE EVENT DATE: 20120118
